FAERS Safety Report 17429791 (Version 4)
Quarter: 2020Q3

REPORT INFORMATION
  Report Type: Spontaneous
  Country: US (occurrence: US)
  Receive Date: 20200218
  Receipt Date: 20200826
  Transmission Date: 20201102
  Serious: Yes (Other)
  Sender: FDA-Public Use
  Company Number: US-PFIZER INC-2020067288

PATIENT
  Age: 71 Year
  Sex: Female

DRUGS (1)
  1. XELJANZ XR [Suspect]
     Active Substance: TOFACITINIB CITRATE
     Indication: RHEUMATOID ARTHRITIS
     Dosage: 11 MG, DAILY
     Route: 048
     Dates: start: 201910, end: 202007

REACTIONS (7)
  - Thirst [Unknown]
  - Depressed mood [Unknown]
  - Eye degenerative disorder [Unknown]
  - Alopecia [Unknown]
  - Feeling abnormal [Unknown]
  - Optic disc drusen [Unknown]
  - Drug ineffective [Unknown]
